FAERS Safety Report 8586205-7 (Version None)
Quarter: 2012Q3

REPORT INFORMATION
  Report Type: 
  Country: None (occurrence: None)
  Receive Date: 20120810
  Receipt Date: 20120806
  Transmission Date: 20120928
  Serious: Yes (Life-Threatening)
  Sender: FDA-Public Use
  Company Number: TR-GLAXOSMITHKLINE-B0821847A

PATIENT
  Age: 67 Year
  Sex: Female

DRUGS (4)
  1. ASPIRIN [Concomitant]
     Route: 048
     Dates: start: 20100101
  2. AVANDIA [Suspect]
     Indication: DIABETES MELLITUS
     Route: 048
     Dates: start: 20070101, end: 20100101
  3. PERINDOPRIL ERBUMINE [Concomitant]
     Route: 048
     Dates: start: 20100101
  4. CRESTOR [Concomitant]
     Route: 048
     Dates: start: 20100101

REACTIONS (1)
  - MYOCARDIAL INFARCTION [None]
